FAERS Safety Report 20375080 (Version 1)
Quarter: 2022Q1

REPORT INFORMATION
  Report Type: Spontaneous
  Country: FR (occurrence: FR)
  Receive Date: 20220125
  Receipt Date: 20220125
  Transmission Date: 20220423
  Serious: Yes (Other)
  Sender: FDA-Public Use
  Company Number: FR-MYLANLABS-2022M1007304

PATIENT
  Age: 52 Year
  Sex: Female

DRUGS (6)
  1. METHOTREXATE [Suspect]
     Active Substance: METHOTREXATE
     Indication: Vasculitis
     Dosage: 15 MILLIGRAM, QW
     Route: 048
     Dates: start: 201805
  2. METHOTREXATE [Suspect]
     Active Substance: METHOTREXATE
     Indication: Vasculitis
     Dosage: 15 MILLIGRAM, QW
     Route: 058
     Dates: start: 201901
  3. TOCILIZUMAB [Suspect]
     Active Substance: TOCILIZUMAB
     Indication: Vasculitis
     Dosage: 8 MILLIGRAM/KILOGRAM
     Route: 042
     Dates: start: 201809
  4. INFLIXIMAB [Concomitant]
     Active Substance: INFLIXIMAB
     Indication: Vasculitis
     Dosage: 5 MILLIGRAM/KILOGRAM, MONTHLY
     Route: 042
     Dates: start: 201905
  5. CYCLOPHOSPHAMIDE [Concomitant]
     Active Substance: CYCLOPHOSPHAMIDE
     Indication: Vasculitis
     Dosage: 3 PULSES OF 0.6 G/M2
     Route: 065
     Dates: start: 201909
  6. CYCLOPHOSPHAMIDE [Concomitant]
     Active Substance: CYCLOPHOSPHAMIDE
     Dosage: 3 PULSES OF 0.7 G/M2
     Route: 065
     Dates: start: 2019

REACTIONS (2)
  - Drug ineffective for unapproved indication [Unknown]
  - Off label use [Unknown]
